FAERS Safety Report 9226253 (Version 3)
Quarter: 2013Q2

REPORT INFORMATION
  Report Type: Spontaneous
  Country: JP (occurrence: JP)
  Receive Date: 20130411
  Receipt Date: 20130521
  Transmission Date: 20140414
  Serious: Yes (Death, Hospitalization)
  Sender: FDA-Public Use
  Company Number: JP-PFIZER INC-2013111727

PATIENT
  Age: 92 Year
  Sex: Female
  Weight: 42.5 kg

DRUGS (17)
  1. ZYVOX [Suspect]
     Indication: PNEUMONIA STAPHYLOCOCCAL
     Dosage: 600 MG, 2X/DAY
     Route: 041
     Dates: start: 20130319, end: 20130402
  2. PLAVIX [Concomitant]
     Dosage: 75 MG, 1X/DAY
     Route: 048
  3. FUNGUARD [Concomitant]
     Dosage: 50 MG, 1X/DAY
     Route: 042
     Dates: start: 20130313, end: 20130318
  4. FUNGUARD [Concomitant]
     Dosage: 100 MG, 1X/DAY
     Route: 042
     Dates: start: 20130319, end: 20130325
  5. ALLOPURINOL [Concomitant]
     Dosage: 100 MG, 2X/DAY
     Route: 048
  6. THEO-DUR [Concomitant]
     Dosage: 2 G, 2X/DAY
     Route: 048
  7. VANCOMYCIN [Concomitant]
     Indication: PNEUMONIA STAPHYLOCOCCAL
     Dosage: 0.5 G, 4X/DAY
     Route: 048
     Dates: start: 20130222, end: 20130307
  8. VANCOMYCIN [Concomitant]
     Indication: PNEUMONIA STAPHYLOCOCCAL
     Dosage: 1 G, 1X/DAY
     Route: 042
     Dates: start: 20130226, end: 20130304
  9. ZOSYN [Concomitant]
     Dosage: 2.25 G, 3X/DAY
     Route: 042
     Dates: start: 20130301, end: 20130313
  10. TEICOPLANIN [Concomitant]
     Indication: PNEUMONIA STAPHYLOCOCCAL
     Dosage: 400 MG, 2X/DAY
     Route: 042
     Dates: start: 20130305, end: 20130306
  11. TEICOPLANIN [Concomitant]
     Dosage: 400 MG, 1X/DAY
     Route: 042
     Dates: start: 20130307, end: 20130311
  12. TEICOPLANIN [Concomitant]
     Dosage: 400 MG, ALTERNATE DAY
     Route: 042
     Dates: start: 20130313, end: 20130315
  13. EVISTA [Concomitant]
     Dosage: 60 MG, 1X/DAY
     Route: 048
  14. LASIX [Concomitant]
     Dosage: 1 G, 1X/DAY
     Route: 048
  15. ATELEC [Concomitant]
     Dosage: 10 MG, 2X/DAY
     Route: 048
  16. BLOPRESS [Concomitant]
     Dosage: 4 MG, 1X/DAY
     Route: 048
  17. SINGULAIR [Concomitant]
     Dosage: 10 MG, 1X/DAY
     Route: 048

REACTIONS (8)
  - Sepsis [Fatal]
  - Anaemia [Recovering/Resolving]
  - White blood cell count decreased [Recovered/Resolved]
  - Platelet count decreased [Recovered/Resolved]
  - Ileus [Recovered/Resolved]
  - Diarrhoea [Recovering/Resolving]
  - Constipation [Recovered/Resolved]
  - Eosinophil count increased [Recovered/Resolved]
